FAERS Safety Report 11434550 (Version 1)
Quarter: 2015Q3

REPORT INFORMATION
  Report Type: Spontaneous
  Country: NL (occurrence: NL)
  Receive Date: 20150831
  Receipt Date: 20150831
  Transmission Date: 20151125
  Serious: Yes (Life-Threatening, Hospitalization)
  Sender: FDA-Public Use
  Company Number: NL-TEVA-589605ISR

PATIENT
  Age: 46 Year
  Sex: Female

DRUGS (4)
  1. BACLOFEN. [Suspect]
     Active Substance: BACLOFEN
     Indication: INTENTIONAL OVERDOSE
     Dosage: SELF-INGESTED 70 TABLETS OF 10 MG
     Route: 048
  2. BACLOFEN. [Suspect]
     Active Substance: BACLOFEN
     Indication: ALCOHOL WITHDRAWAL SYNDROME
     Dosage: 30 MILLIGRAM DAILY;
     Route: 048
  3. OXAZEPAM. [Concomitant]
     Active Substance: OXAZEPAM
     Dosage: 10 MILLIGRAM DAILY;
     Route: 065
  4. CLOMIPRAMINE [Concomitant]
     Active Substance: CLOMIPRAMINE
     Dosage: 75 MILLIGRAM DAILY;
     Route: 065

REACTIONS (11)
  - Intentional overdose [Recovering/Resolving]
  - Vomiting [Recovering/Resolving]
  - Restlessness [Recovering/Resolving]
  - Photophobia [Recovering/Resolving]
  - Respiratory failure [Recovering/Resolving]
  - Hypertension [Recovering/Resolving]
  - Depressed level of consciousness [Recovered/Resolved]
  - Hypothermia [Recovering/Resolving]
  - Disturbance in attention [Recovering/Resolving]
  - Hyperhidrosis [Recovering/Resolving]
  - Nausea [Recovering/Resolving]
